FAERS Safety Report 9907601 (Version 1)
Quarter: 2014Q1

REPORT INFORMATION
  Report Type: Report from Study
  Country: US (occurrence: US)
  Receive Date: 20140219
  Receipt Date: 20140219
  Transmission Date: 20141002
  Serious: Yes (Other)
  Sender: FDA-Public Use
  Company Number: US-ROCHE-1331566

PATIENT
  Age: 69 Year
  Sex: Female

DRUGS (5)
  1. LUCENTIS [Suspect]
     Indication: AGE-RELATED MACULAR DEGENERATION
     Route: 050
  2. AVASTIN [Suspect]
     Indication: PRODUCT USED FOR UNKNOWN INDICATION
     Route: 050
  3. ALEVE [Concomitant]
  4. CORTISONE [Concomitant]
  5. PRESERVISION AREDS [Concomitant]

REACTIONS (9)
  - Macular oedema [Unknown]
  - Retinal haemorrhage [Unknown]
  - Cataract [Unknown]
  - Arthralgia [Unknown]
  - Retinal scar [Unknown]
  - Ophthalmological examination abnormal [Unknown]
  - Vision blurred [Unknown]
  - Visual field defect [Unknown]
  - Arthralgia [Unknown]
